FAERS Safety Report 17962358 (Version 1)
Quarter: 2020Q2

REPORT INFORMATION
  Report Type: Spontaneous
  Country: TW (occurrence: TW)
  Receive Date: 20200630
  Receipt Date: 20200630
  Transmission Date: 20200714
  Serious: Yes (Hospitalization)
  Sender: FDA-Public Use
  Company Number: TW-ASTRAZENECA-2020SE80706

PATIENT
  Age: 54 Year
  Sex: Female
  Weight: 71.8 kg

DRUGS (3)
  1. CEFTRIAXONE. [Concomitant]
     Active Substance: CEFTRIAXONE
     Route: 042
     Dates: start: 20200602, end: 20200604
  2. CEFUROXIME. [Concomitant]
     Active Substance: CEFUROXIME
     Dosage: 1.0G EVERY 8 - 12 HOURS
     Route: 042
     Dates: start: 20200602, end: 20200604
  3. XIGDUO XR [Suspect]
     Active Substance: DAPAGLIFLOZIN PROPANEDIOL\METFORMIN HYDROCHLORIDE
     Indication: TYPE 2 DIABETES MELLITUS
     Dosage: DAPAGLIFLOZIN - METFORMIN: 10MG/1000MG/TAB, DAILY
     Route: 048
     Dates: start: 20200604, end: 20200607

REACTIONS (3)
  - Diabetic ketoacidosis [Recovered/Resolved]
  - Loss of consciousness [Recovered/Resolved]
  - Respiratory failure [Recovered/Resolved]

NARRATIVE: CASE EVENT DATE: 20200607
